FAERS Safety Report 25914981 (Version 1)
Quarter: 2025Q4

REPORT INFORMATION
  Report Type: Spontaneous
  Country: RU (occurrence: RU)
  Receive Date: 20251013
  Receipt Date: 20251013
  Transmission Date: 20260117
  Serious: Yes (Other)
  Sender: IPSEN BIOPHARMACEUTICALS, INC.
  Company Number: RU-IPSEN Group, Research and Development-2025-25248

PATIENT
  Age: 63 Year
  Sex: Female
  Weight: 78 kg

DRUGS (1)
  1. LANREOTIDE ACETATE [Suspect]
     Active Substance: LANREOTIDE ACETATE
     Indication: Neuroendocrine carcinoma
     Dosage: 120 MG, 1 TIME PER 28 DAYS
     Route: 058

REACTIONS (8)
  - Metastases to liver [Unknown]
  - Hepatic mass [Unknown]
  - Humerus fracture [Unknown]
  - Serum serotonin increased [Unknown]
  - Hiatus hernia [Unknown]
  - Hepatomegaly [Unknown]
  - Pancreatic mass [Unknown]
  - Metabolic disorder [Unknown]

NARRATIVE: CASE EVENT DATE: 20230401
